FAERS Safety Report 8774141 (Version 3)
Quarter: 2012Q4

REPORT INFORMATION
  Report Type: 
  Country: GB (occurrence: GB)
  Receive Date: 20120907
  Receipt Date: 20120917
  Transmission Date: 20130627
  Serious: Yes (Other)
  Sender: FDA-Public Use
  Company Number: PHFR2012GB004800

PATIENT
  Age: 50 Year
  Sex: Female

DRUGS (1)
  1. ESTRADERM [Suspect]
     Dosage: 1 DF, QW2 (Twice a week)
     Route: 062

REACTIONS (2)
  - Osteoporosis [Unknown]
  - Product adhesion issue [Unknown]
